FAERS Safety Report 9450253 (Version 1)
Quarter: 2013Q3

REPORT INFORMATION
  Report Type: Spontaneous
  Country: US (occurrence: US)
  Receive Date: 20130809
  Receipt Date: 20130809
  Transmission Date: 20140515
  Serious: Yes (Hospitalization)
  Sender: FDA-Public Use
  Company Number: US-B.I. PHARMACEUTICALS,INC./RIDGEFIELD-2013-BI-23533BP

PATIENT
  Age: 80 Year
  Sex: Female
  Weight: 63 kg

DRUGS (13)
  1. SPIRIVA [Suspect]
     Indication: CHRONIC OBSTRUCTIVE PULMONARY DISEASE
     Dosage: 18 MCG
     Route: 055
     Dates: start: 2010
  2. SPIRIVA [Suspect]
     Dosage: 18 MCG
     Route: 048
     Dates: start: 2010
  3. NEXIUM [Concomitant]
     Indication: REFLUX GASTRITIS
     Dosage: 40 MG
     Route: 048
  4. CALCIUM + VITAMIN D [Concomitant]
     Indication: ELECTROLYTE SUBSTITUTION THERAPY
     Dosage: DOSE PER APPLICATION: 600/200 MG; DAILY DOSE: 1800/600 MG
     Route: 048
  5. VITAMIN D [Concomitant]
     Indication: ELECTROLYTE SUBSTITUTION THERAPY
     Dosage: 200 U
     Route: 048
  6. DIOVAN [Concomitant]
     Indication: HYPERTENSION
     Dosage: 80 MG
     Route: 048
  7. DIOVAN [Concomitant]
     Indication: DIURETIC THERAPY
  8. FLOVENT HFA [Concomitant]
     Indication: ASTHMA
     Dosage: 880 MCG
     Route: 055
  9. VITAMIN B 12 [Concomitant]
     Indication: ELECTROLYTE SUBSTITUTION THERAPY
     Route: 058
  10. ATENOLOL [Concomitant]
     Indication: HYPERTENSION
     Dosage: 100 MG
     Route: 048
  11. DETROL LA [Concomitant]
     Indication: HYPERTONIC BLADDER
     Dosage: 4 MG
     Route: 048
  12. ATROVASTATIN [Concomitant]
     Indication: BLOOD CHOLESTEROL INCREASED
     Dosage: 20 MG
     Route: 048
  13. VENTOLIN HFA [Concomitant]
     Indication: ASTHMA
     Route: 055

REACTIONS (2)
  - Osteoarthritis [Recovered/Resolved]
  - Incorrect route of drug administration [Recovered/Resolved]
